FAERS Safety Report 8842171 (Version 4)
Quarter: 2014Q2

REPORT INFORMATION
  Report Type: Spontaneous
  Country: JP (occurrence: JP)
  Receive Date: 20121016
  Receipt Date: 20140611
  Transmission Date: 20141212
  Serious: Yes (Hospitalization)
  Sender: FDA-Public Use
  Company Number: PHHY2012JP090836

PATIENT
  Sex: Male
  Weight: 72.14 kg

DRUGS (4)
  1. NEORAL [Suspect]
     Indication: MYASTHENIA GRAVIS
     Dosage: 100 MG, DAILY
     Route: 048
  2. NEORAL [Suspect]
     Dosage: 50 MG, DAILY
  3. GANCICLOVIR [Concomitant]
     Route: 048
  4. CORTICOSTEROID NOS [Concomitant]
     Indication: MYASTHENIA GRAVIS
     Route: 048

REACTIONS (20)
  - Renal failure acute [Recovered/Resolved]
  - Renal tubular atrophy [Unknown]
  - Oliguria [Recovered/Resolved]
  - Blood fibrinogen abnormal [Unknown]
  - Glomerulonephritis minimal lesion [Recovered/Resolved]
  - Anorectal disorder [Unknown]
  - Glomerular filtration rate abnormal [Unknown]
  - Tubulointerstitial nephritis [Unknown]
  - Immunosuppressant drug level increased [Unknown]
  - Blood urea increased [Unknown]
  - Blood calcium increased [Unknown]
  - Culture positive [Unknown]
  - Nephrotic syndrome [Recovered/Resolved]
  - Blood albumin decreased [Unknown]
  - Protein total increased [Unknown]
  - Proteinuria [Recovered/Resolved]
  - Total cholesterol/HDL ratio increased [Unknown]
  - Weight increased [Recovered/Resolved]
  - Nausea [Unknown]
  - Drug resistance [Unknown]
